FAERS Safety Report 13100528 (Version 1)
Quarter: 2017Q1

REPORT INFORMATION
  Report Type: Spontaneous
  Country: BR (occurrence: BR)
  Receive Date: 20170110
  Receipt Date: 20170110
  Transmission Date: 20170428
  Serious: Yes (Other)
  Sender: FDA-Public Use
  Company Number: BR-009507513-1701BRA000988

PATIENT
  Age: 59 Year
  Sex: Male
  Weight: 92 kg

DRUGS (8)
  1. JANUMET [Suspect]
     Active Substance: METFORMIN HYDROCHLORIDE\SITAGLIPTIN PHOSPHATE
     Indication: DIABETES MELLITUS
     Dosage: 50/500 MG (ONE TABLET), QD
     Route: 048
     Dates: start: 2015, end: 20161229
  2. COZAAR [Suspect]
     Active Substance: LOSARTAN POTASSIUM
     Indication: HYPERTENSION
     Dosage: 50 MG, Q12H
     Route: 048
     Dates: start: 1998, end: 2005
  3. COZAAR [Suspect]
     Active Substance: LOSARTAN POTASSIUM
     Indication: HYPERTENSION
     Dosage: 100 MG, Q12H
     Route: 048
     Dates: start: 2005, end: 2013
  4. DIOVAN [Concomitant]
     Active Substance: VALSARTAN
     Indication: BLOOD PRESSURE INADEQUATELY CONTROLLED
     Dosage: 160 MG, Q12H
     Route: 048
     Dates: start: 2013
  5. JANUMET [Suspect]
     Active Substance: METFORMIN HYDROCHLORIDE\SITAGLIPTIN PHOSPHATE
     Dosage: 50/500 MG (ONE TABLET), QD
     Route: 048
     Dates: start: 20161230
  6. MODURETIC 5-50 [Suspect]
     Active Substance: AMILORIDE HYDROCHLORIDE\HYDROCHLOROTHIAZIDE
     Indication: HYPERTENSION
     Dosage: 25 MG, Q12H
     Route: 048
     Dates: start: 2015
  7. SOMALGIN [Concomitant]
     Active Substance: ASPIRIN\DIHYDROXYALUMINUM AMINOACETATE ANHYDROUS\MAGNESIUM CARBONATE
     Dosage: 325 MG, DAILY IN THE MORNING
     Route: 048
     Dates: start: 2013
  8. DIAMICRON [Concomitant]
     Active Substance: GLICLAZIDE
     Indication: DIABETES MELLITUS
     Dosage: 30 MG, DAILY AT NIGHT
     Route: 048

REACTIONS (3)
  - Blood cholesterol increased [Unknown]
  - Diabetes mellitus inadequate control [Recovered/Resolved]
  - Expired product administered [Unknown]

NARRATIVE: CASE EVENT DATE: 201609
